FAERS Safety Report 24935188 (Version 1)
Quarter: 2025Q1

REPORT INFORMATION
  Report Type: Report from Study
  Country: GB (occurrence: GB)
  Receive Date: 20250206
  Receipt Date: 20250206
  Transmission Date: 20250409
  Serious: Yes (Other)
  Sender: CELLTRION
  Company Number: GB-CELLTRION INC.-2025GB003182

PATIENT

DRUGS (1)
  1. INFLIXIMAB-DYYB [Suspect]
     Active Substance: INFLIXIMAB-DYYB
     Indication: Crohn^s disease
     Route: 058
     Dates: start: 202412

REACTIONS (3)
  - Internal haemorrhage [Recovered/Resolved]
  - Abdominal pain upper [Recovered/Resolved]
  - Localised infection [Unknown]
